FAERS Safety Report 17878379 (Version 1)
Quarter: 2020Q2

REPORT INFORMATION
  Report Type: Report from Study
  Country: None (occurrence: US)
  Receive Date: 20200610
  Receipt Date: 20200610
  Transmission Date: 20200714
  Serious: Yes (Hospitalization, Other)
  Sender: FDA-Public Use
  Company Number: US-ABBVIE-19K-163-3203626-00

PATIENT
  Age: 60 Year
  Sex: Male

DRUGS (1)
  1. HUMIRA [Suspect]
     Active Substance: ADALIMUMAB
     Indication: RHEUMATOID ARTHRITIS
     Route: 058
     Dates: start: 20171220

REACTIONS (9)
  - General physical condition abnormal [Unknown]
  - Cardiac disorder [Unknown]
  - Blood electrolytes decreased [Unknown]
  - Eczema [Recovered/Resolved]
  - Blood potassium decreased [Unknown]
  - Skin cancer [Unknown]
  - Eczema [Unknown]
  - Chronic obstructive pulmonary disease [Unknown]
  - Dermatitis psoriasiform [Unknown]

NARRATIVE: CASE EVENT DATE: 201908
